FAERS Safety Report 8034469-0 (Version None)
Quarter: 2012Q1

REPORT INFORMATION
  Report Type: 
  Country: None (occurrence: None)
  Receive Date: 20120110
  Receipt Date: 20120105
  Transmission Date: 20120608
  Serious: Yes (Hospitalization, Other)
  Sender: FDA-Public Use
  Company Number: AT-AMGEN-KDC400594

PATIENT
  Age: 45 Year
  Sex: Male

DRUGS (2)
  1. DENOSUMAB [Suspect]
     Indication: BONE GIANT CELL TUMOUR
     Dosage: 120 MG, QMO
     Route: 058
     Dates: start: 20090217, end: 20100217
  2. IBUPROFEN [Concomitant]
     Dosage: 400 MG, TID
     Route: 048
     Dates: start: 20100111, end: 20100420

REACTIONS (3)
  - OSTEOMYELITIS [None]
  - OSTEONECROSIS OF JAW [None]
  - WOUND [None]
